FAERS Safety Report 6939627-1 (Version None)
Quarter: 2010Q3

REPORT INFORMATION
  Report Type: 
  Country: None (occurrence: None)
  Receive Date: 20100820
  Receipt Date: 20100812
  Transmission Date: 20110219
  Serious: Yes (Life-Threatening, Other)
  Sender: FDA-Public Use
  Company Number: AUR-APL-2010-01851

PATIENT
  Age: 79 Year
  Sex: Female

DRUGS (1)
  1. SIMVASTATIN [Suspect]
     Dosage: 40MG, ORAL
     Route: 048
     Dates: start: 20100101, end: 20100101

REACTIONS (1)
  - MYOSITIS [None]
